FAERS Safety Report 7015294-6 (Version None)
Quarter: 2010Q3

REPORT INFORMATION
  Report Type: 
  Country: None (occurrence: None)
  Receive Date: 20100927
  Receipt Date: 20100917
  Transmission Date: 20110219
  Serious: Yes (Other)
  Sender: FDA-Public Use
  Company Number: BR-US-EMD SERONO, INC.-7018278

PATIENT
  Sex: Female

DRUGS (8)
  1. REBIF [Suspect]
     Indication: RELAPSING-REMITTING MULTIPLE SCLEROSIS
     Route: 058
     Dates: start: 20090304, end: 20100101
  2. REBIF [Suspect]
     Route: 058
     Dates: start: 20100101
  3. OSCAL D [Concomitant]
  4. TYLENOL [Concomitant]
  5. RIVOTRIL [Concomitant]
     Route: 048
  6. NATRIUM MURATIC [Concomitant]
  7. ACCONITUM [Concomitant]
  8. SILICEA [Concomitant]

REACTIONS (4)
  - CENTRAL NERVOUS SYSTEM LESION [None]
  - DRUG INEFFECTIVE [None]
  - MULTIPLE SCLEROSIS RELAPSE [None]
  - OPTIC NEURITIS [None]
